FAERS Safety Report 4809684-7 (Version None)
Quarter: 2005Q4

REPORT INFORMATION
  Report Type: 
  Country: None (occurrence: None)
  Receive Date: 20051021
  Receipt Date: 20030821
  Transmission Date: 20060501
  Serious: No
  Sender: FDA-Public Use
  Company Number: USA030845061

PATIENT
  Age: 79 Year
  Sex: Male

DRUGS (11)
  1. ZYPREXA [Suspect]
     Dosage: 5MG/DAY
  2. TYLENOL [Concomitant]
  3. BISACODYL [Concomitant]
  4. CALCIUM AND VITAMIN D [Concomitant]
  5. CARBIDOPA AND LEVODOPA [Concomitant]
  6. DOCUSATE SODIUM [Concomitant]
  7. DOXAZOSIN [Concomitant]
  8. MILK OF MAGNESIA TAB [Concomitant]
  9. MULTIVITAMINS NOS (MULTIVITAMINS NOS) [Concomitant]
  10. PRAMITEXOLE [Concomitant]
  11. TESTOSTERONE [Concomitant]

REACTIONS (4)
  - BLOOD CHLORIDE DECREASED [None]
  - BLOOD CREATININE DECREASED [None]
  - HYPONATRAEMIA [None]
  - RED BLOOD CELL COUNT DECREASED [None]
